FAERS Safety Report 4642526-1 (Version None)
Quarter: 2005Q2

REPORT INFORMATION
  Report Type: 
  Country: None (occurrence: None)
  Receive Date: 20050422
  Receipt Date: 20050411
  Transmission Date: 20051028
  Serious: Yes (Other)
  Sender: FDA-Public Use
  Company Number: US-GLAXOSMITHKLINE-A0553534A

PATIENT
  Age: 38 Year
  Sex: Female
  Weight: 61 kg

DRUGS (3)
  1. CITRUCEL REGULAR SUSPENSION [Suspect]
     Indication: GASTROINTESTINAL DISORDER
     Dosage: 1TBS PER DAY
     Route: 048
     Dates: start: 20030101
  2. FEOSOL IRON THERAPY TABLETS [Concomitant]
     Indication: HAEMOGLOBIN DECREASED
     Dosage: 1TAB PER DAY
     Route: 048
     Dates: start: 20050404
  3. PRENATAL VITAMINS [Concomitant]
     Route: 048

REACTIONS (3)
  - DRUG EXPOSURE DURING PREGNANCY [None]
  - GESTATIONAL DIABETES [None]
  - HAEMOGLOBIN DECREASED [None]
